FAERS Safety Report 8997825 (Version 1)
Quarter: 2013Q1

REPORT INFORMATION
  Report Type: Spontaneous
  Country: US (occurrence: US)
  Receive Date: 20130104
  Receipt Date: 20130104
  Transmission Date: 20140127
  Serious: Yes (Hospitalization)
  Sender: FDA-Public Use
  Company Number: US-GLAXOSMITHKLINE-A1006959A

PATIENT
  Age: 66 Year
  Sex: Female

DRUGS (1)
  1. HYCAMTIN [Suspect]
     Indication: BRONCHIAL CARCINOMA
     Dosage: 4MG SEE DOSAGE TEXT
     Route: 048

REACTIONS (1)
  - Full blood count decreased [Unknown]
